FAERS Safety Report 9730548 (Version 4)
Quarter: 2014Q1

REPORT INFORMATION
  Report Type: Spontaneous
  Country: KR (occurrence: KR)
  Receive Date: 20131204
  Receipt Date: 20140109
  Transmission Date: 20141002
  Serious: Yes (Other)
  Sender: FDA-Public Use
  Company Number: KR-ROCHE-1302952

PATIENT
  Age: 79 Year
  Sex: Female

DRUGS (5)
  1. LUCENTIS [Suspect]
     Indication: AGE-RELATED MACULAR DEGENERATION
     Route: 050
  2. LUCENTIS [Suspect]
     Indication: APHAKIA
     Route: 050
     Dates: start: 20110324
  3. ALCAINE [Concomitant]
  4. POVIDONE IODINE [Concomitant]
  5. OFLOXACIN [Concomitant]

REACTIONS (2)
  - Retinal pigment epithelial tear [Unknown]
  - Maculopathy [Unknown]
